FAERS Safety Report 4604281-0 (Version None)
Quarter: 2005Q1

REPORT INFORMATION
  Report Type: 
  Country: None (occurrence: None)
  Receive Date: 20050201
  Receipt Date: 20040227
  Transmission Date: 20050727
  Serious: Yes (Life-Threatening, Hospitalization)
  Sender: FDA-Public Use
  Company Number: MEDI-0001514

PATIENT
  Age: 59 Year
  Sex: Female
  Weight: 47.7 kg

DRUGS (2)
  1. CYTOGAM [Suspect]
     Indication: LUNG TRANSPLANT
     Dosage: 150MG/KG IV
     Dates: start: 20040223, end: 20040223
  2. COUMADIN [Concomitant]

REACTIONS (14)
  - ANAPHYLACTIC REACTION [None]
  - CHRONIC OBSTRUCTIVE PULMONARY DISEASE [None]
  - CYTOMEGALOVIRUS TEST NEGATIVE [None]
  - DEEP VEIN THROMBOSIS [None]
  - DIABETES MELLITUS NON-INSULIN-DEPENDENT [None]
  - DYSPNOEA [None]
  - EPSTEIN-BARR VIRUS INFECTION [None]
  - HYPOXIA [None]
  - INTUBATION [None]
  - LUNG TRANSPLANT [None]
  - PALLOR [None]
  - PNEUMONIA LEGIONELLA [None]
  - PULMONARY EMBOLISM [None]
  - RESPIRATORY FAILURE [None]
